FAERS Safety Report 8542459-4 (Version None)
Quarter: 2012Q3

REPORT INFORMATION
  Report Type: 
  Country: None (occurrence: None)
  Receive Date: 20120726
  Receipt Date: 20120327
  Transmission Date: 20120928
  Serious: Yes (Hospitalization)
  Sender: FDA-Public Use
  Company Number: US-ASTRAZENECA-2008UW23075

PATIENT
  Age: 590 Month
  Sex: Male
  Weight: 106.5 kg

DRUGS (6)
  1. VALIUM [Concomitant]
  2. SEROQUEL [Suspect]
     Dosage: 400 MG IN THE MORNING AND IN THE AFTERNOON AND 600 MG AT BEDTIME
     Route: 048
  3. SEROQUEL [Suspect]
     Dosage: 400 MG IN THE MORNING AND IN THE AFTERNOON AND 600 MG AT BEDTIME
     Route: 048
  4. AMBIEN [Concomitant]
  5. SEROQUEL [Suspect]
     Route: 048
     Dates: start: 20020101
  6. SEROQUEL [Suspect]
     Indication: PERSONALITY DISORDER
     Route: 048
     Dates: start: 20020101

REACTIONS (6)
  - AMNESIA [None]
  - AGGRESSION [None]
  - INTENTIONAL DRUG MISUSE [None]
  - WEIGHT INCREASED [None]
  - DELIRIUM TREMENS [None]
  - HALLUCINATION [None]
